FAERS Safety Report 8077203-0 (Version None)
Quarter: 2012Q1

REPORT INFORMATION
  Report Type: 
  Country: None (occurrence: None)
  Receive Date: 20120127
  Receipt Date: 20120123
  Transmission Date: 20120608
  Serious: Yes (Death, Other)
  Sender: FDA-Public Use
  Company Number: PHHY2012FR006051

PATIENT
  Sex: Male

DRUGS (8)
  1. ALISKIREN [Suspect]
     Dosage: 300 MG, UNK
  2. DURETIC [Concomitant]
     Dosage: UNK
  3. BETA BLOCKING AGENTS [Concomitant]
     Dosage: UNK
  4. HMG COA REDUCTASE INHIBITORS [Concomitant]
     Dosage: UNK
  5. INSULIN [Concomitant]
     Dosage: UNK
     Dates: start: 20090101
  6. ANGIOTENSIN II ANTAGONISTS [Concomitant]
     Dosage: UNK
  7. ALISKIREN [Suspect]
     Dosage: 150 MG, UNK
  8. PLATELET AGGREGATION INHIBITORS [Concomitant]
     Dosage: UNK

REACTIONS (6)
  - BLOOD CREATININE INCREASED [None]
  - GLYCOSYLATED HAEMOGLOBIN INCREASED [None]
  - HYPERKALAEMIA [None]
  - RETINOPATHY [None]
  - DIABETIC NEPHROPATHY [None]
  - DEATH [None]
